FAERS Safety Report 5400560-8 (Version None)
Quarter: 2007Q3

REPORT INFORMATION
  Report Type: 
  Country: None (occurrence: None)
  Receive Date: 20070730
  Receipt Date: 20070727
  Transmission Date: 20080115
  Serious: Yes (Death, Hospitalization, Other)
  Sender: FDA-Public Use
  Company Number: PHEH2007US08695

PATIENT
  Age: 65 Year
  Sex: Male

DRUGS (24)
  1. EXJADE [Suspect]
     Indication: IRON OVERLOAD
     Dosage: 1750 MG, QD
     Route: 048
     Dates: start: 20070515
  2. RED BLOOD CELLS [Concomitant]
     Indication: ACUTE MYELOID LEUKAEMIA
     Dosage: UNK, QOD
  3. PLATELETS [Concomitant]
     Indication: ACUTE MYELOID LEUKAEMIA
  4. NEUPOGEN [Concomitant]
     Indication: ACUTE MYELOID LEUKAEMIA
     Dosage: UNK, QOD
  5. LAMIVUDINE [Concomitant]
  6. ACYCLOVIR [Concomitant]
  7. METOPROLOL SUCCINATE [Concomitant]
  8. NORVASC [Concomitant]
  9. DILTIAZEM [Concomitant]
  10. NEXIUM [Concomitant]
  11. FLOMAX [Concomitant]
  12. AVODART [Concomitant]
  13. ENTOCORT EC [Concomitant]
  14. CALCIUM W/VITAMIN D NOS [Concomitant]
  15. MULTI-VITAMIN [Concomitant]
  16. POTASSIUM CHLORIDE [Concomitant]
  17. MAGNESIUM OXIDE [Concomitant]
  18. AMBIEN [Concomitant]
  19. AVELOX [Concomitant]
  20. RESTORIL [Concomitant]
  21. ATIVAN [Concomitant]
  22. HYDROCODONE BITARTRATE [Concomitant]
  23. LOMOTIL [Concomitant]
  24. PHENERGAN HCL [Concomitant]

REACTIONS (35)
  - ACUTE MYELOID LEUKAEMIA [None]
  - ACUTE MYELOID LEUKAEMIA RECURRENT [None]
  - ATELECTASIS [None]
  - BLOOD ALBUMIN DECREASED [None]
  - BLOOD ALKALINE PHOSPHATASE INCREASED [None]
  - BLOOD CREATININE INCREASED [None]
  - BLOOD SODIUM DECREASED [None]
  - BRONCHOSCOPY NORMAL [None]
  - CARDIAC DISORDER [None]
  - CARDIOMEGALY [None]
  - CHEST DISCOMFORT [None]
  - CHEST X-RAY ABNORMAL [None]
  - COUGH [None]
  - ECHOCARDIOGRAM ABNORMAL [None]
  - EJECTION FRACTION DECREASED [None]
  - FEBRILE NEUTROPENIA [None]
  - HAEMATOCRIT DECREASED [None]
  - HAEMOGLOBIN DECREASED [None]
  - HEART RATE INCREASED [None]
  - INFECTION [None]
  - LUNG DISORDER [None]
  - LUNG INFILTRATION [None]
  - MITRAL VALVE INCOMPETENCE [None]
  - OPPORTUNISTIC INFECTION [None]
  - PLATELET COUNT DECREASED [None]
  - PNEUMONIA [None]
  - PROTEIN TOTAL DECREASED [None]
  - RALES [None]
  - RESPIRATORY FAILURE [None]
  - TOTAL LUNG CAPACITY DECREASED [None]
  - TRICUSPID VALVE INCOMPETENCE [None]
  - VENTRICULAR DYSFUNCTION [None]
  - VENTRICULAR HYPERTROPHY [None]
  - VENTRICULAR HYPOKINESIA [None]
  - WHITE BLOOD CELL COUNT DECREASED [None]
